FAERS Safety Report 5702449-3 (Version None)
Quarter: 2008Q2

REPORT INFORMATION
  Report Type: 
  Country: None (occurrence: None)
  Receive Date: 20080408
  Receipt Date: 20080325
  Transmission Date: 20081010
  Serious: Yes (Hospitalization, Disabling, Other)
  Sender: FDA-Public Use
  Company Number: JPKYO-S-20080018

PATIENT
  Age: 68 Year
  Sex: Female

DRUGS (9)
  1. NAVELBINE [Suspect]
     Indication: BREAST CANCER
     Dosage: 25 MG/M2 QD IV
     Route: 042
     Dates: start: 20070201, end: 20070317
  2. NAVELBINE [Suspect]
     Indication: BREAST CANCER
     Dosage: 20 MG/M2 QD IV
     Route: 042
     Dates: start: 20070517, end: 20070524
  3. ENALAPRIL MALEATE [Concomitant]
  4. GLIMICRON [Concomitant]
  5. LANSOPRAZOLE [Concomitant]
  6. COTRIL [Concomitant]
  7. CYANOCOBALAMIN [Concomitant]
  8. RYTHMODAN P [Concomitant]
  9. AMIODARONE HCL [Concomitant]

REACTIONS (10)
  - ARRHYTHMIA [None]
  - CEREBRAL INFARCTION [None]
  - EXTERNAL EAR INFLAMMATION [None]
  - FACIAL PALSY [None]
  - GASTRITIS HAEMORRHAGIC [None]
  - HAEMOGLOBIN DECREASED [None]
  - INJECTION SITE INFLAMMATION [None]
  - LEUKOPENIA [None]
  - MOUTH ULCERATION [None]
  - VOMITING [None]
